FAERS Safety Report 15482537 (Version 1)
Quarter: 2018Q4

REPORT INFORMATION
  Report Type: Spontaneous
  Country: US (occurrence: US)
  Receive Date: 20181010
  Receipt Date: 20181010
  Transmission Date: 20190205
  Serious: No
  Sender: FDA-Public Use
  Company Number: US-SA-2018SA277050

PATIENT
  Sex: Male

DRUGS (9)
  1. BENADRYL [Concomitant]
     Active Substance: DIPHENHYDRAMINE HYDROCHLORIDE
  2. CYCLOBENZAPRINE HCL [Concomitant]
     Active Substance: CYCLOBENZAPRINE HYDROCHLORIDE
  3. CLARITIN [LORATADINE] [Concomitant]
  4. BETAMETHASONE. [Concomitant]
     Active Substance: BETAMETHASONE
  5. TRIAMCINOLONE ACETONIDE. [Concomitant]
     Active Substance: TRIAMCINOLONE ACETONIDE
  6. PULMICORT TURBUHALER [Concomitant]
     Active Substance: BUDESONIDE
  7. DUPIXENT [Suspect]
     Active Substance: DUPILUMAB
     Indication: STAPHYLOCOCCAL SCALDED SKIN SYNDROME
     Dosage: 300 MG, QOW
     Route: 058
     Dates: start: 201808
  8. EPINEPHRINE. [Concomitant]
     Active Substance: EPINEPHRINE
  9. PROAIR HFA [Concomitant]
     Active Substance: ALBUTEROL SULFATE

REACTIONS (2)
  - Eye pruritus [Unknown]
  - Lacrimation increased [Unknown]
